FAERS Safety Report 5373085-6 (Version None)
Quarter: 2007Q2

REPORT INFORMATION
  Report Type: 
  Country: None (occurrence: None)
  Receive Date: 20070627
  Receipt Date: 20070619
  Transmission Date: 20071010
  Serious: Yes (Other)
  Sender: FDA-Public Use
  Company Number: US-PFIZER INC-2007051067

PATIENT
  Sex: Female
  Weight: 104 kg

DRUGS (2)
  1. AROMASIN [Suspect]
     Indication: BREAST CANCER
     Route: 048
  2. LEVAQUIN [Interacting]
     Indication: CELLULITIS
     Dates: start: 20070527, end: 20070601

REACTIONS (3)
  - ARTHRALGIA [None]
  - CELLULITIS [None]
  - DRUG INTERACTION [None]
